FAERS Safety Report 7199581-7 (Version None)
Quarter: 2010Q4

REPORT INFORMATION
  Report Type: 
  Country: None (occurrence: None)
  Receive Date: 20101228
  Receipt Date: 20101214
  Transmission Date: 20110411
  Serious: Yes (Hospitalization)
  Sender: FDA-Public Use
  Company Number: NL-CELGENEUS-114-20785-10121456

PATIENT
  Sex: Male
  Weight: 71 kg

DRUGS (8)
  1. THALIDOMIDE [Suspect]
     Indication: MULTIPLE MYELOMA
     Route: 048
     Dates: start: 20101206, end: 20101212
  2. THALIDOMIDE [Suspect]
     Route: 048
  3. MELPHALAN [Suspect]
     Indication: MULTIPLE MYELOMA
     Route: 048
     Dates: start: 20101206, end: 20101209
  4. PREDNISONE [Suspect]
     Indication: MULTIPLE MYELOMA
     Route: 048
     Dates: start: 20101206, end: 20101209
  5. ASCAL [Concomitant]
     Indication: PROPHYLAXIS
     Route: 048
     Dates: start: 20101206
  6. PANTAZOL [Concomitant]
     Indication: PROPHYLAXIS
     Route: 048
     Dates: start: 20101102
  7. PCM [Concomitant]
     Indication: PAIN
     Route: 048
     Dates: start: 20101027
  8. MOVICOLON [Concomitant]
     Indication: PROPHYLAXIS
     Route: 048
     Dates: start: 20101027

REACTIONS (3)
  - CIRCULATORY COLLAPSE [None]
  - FALL [None]
  - RASH [None]
